FAERS Safety Report 22002079 (Version 2)
Quarter: 2024Q3

REPORT INFORMATION
  Report Type: Spontaneous
  Country: BR (occurrence: BR)
  Receive Date: 20230216
  Receipt Date: 20240903
  Transmission Date: 20241017
  Serious: No
  Sender: CELLTRION
  Company Number: BR-CELLTRION INC.-2023BR003244

PATIENT

DRUGS (6)
  1. INFLIXIMAB [Suspect]
     Active Substance: INFLIXIMAB
     Indication: Takayasu^s arteritis
     Dosage: 3 AMPOULES ON DAY 0, 3 AMPOULES AFTER 2 WEEKS, THEN 3 AMPOULES EVERY 2 MONTHS
     Route: 042
  2. INFLIXIMAB [Suspect]
     Active Substance: INFLIXIMAB
     Dosage: FIFTH INFUSION WITH REMSIMA / 3 VIALS EVERY 2 MONTHS
     Route: 042
  3. INFLIXIMAB [Suspect]
     Active Substance: INFLIXIMAB
     Dosage: SIXTH INFUSION WITH REMSIMA / 3 VIALS EVERY 2 MONTHS
     Route: 042
     Dates: end: 202401
  4. INFLIXIMAB [Suspect]
     Active Substance: INFLIXIMAB
     Dosage: 3 VIALS EVERY 2 MONTHS
     Route: 042
     Dates: end: 202402
  5. PREDNISONE [Concomitant]
     Active Substance: PREDNISONE
     Indication: Takayasu^s arteritis
     Dosage: 2 PILLS PER DAY
     Route: 048
     Dates: start: 2020
  6. AZATHIOPRINE [Concomitant]
     Active Substance: AZATHIOPRINE
     Indication: Takayasu^s arteritis
     Dosage: 2 PILLS PER DAY
     Route: 048
     Dates: start: 2020

REACTIONS (3)
  - Hypersensitivity [Recovered/Resolved]
  - Dengue fever [Unknown]
  - Off label use [Unknown]
